FAERS Safety Report 10753845 (Version 2)
Quarter: 2015Q1

REPORT INFORMATION
  Report Type: Report from Study
  Country: NL (occurrence: NL)
  Receive Date: 20150202
  Receipt Date: 20150216
  Transmission Date: 20150721
  Serious: Yes (Hospitalization)
  Sender: FDA-Public Use
  Company Number: NL-ROCHE-1526289

PATIENT
  Age: 66 Year
  Sex: Male

DRUGS (3)
  1. CISPLATIN. [Suspect]
     Active Substance: CISPLATIN
     Indication: GASTRIC CANCER
     Dosage: ON DAY 1 OF HRE WEEEKS CYCLE (LAST DOSE: 06 JAN 2015)
     Route: 042
     Dates: start: 20150106
  2. CAPECITABINE. [Suspect]
     Active Substance: CAPECITABINE
     Indication: GASTRIC CANCER
     Dosage: LAST DOSE BEFORE SAE 19/JAN/2015 (ON DAY 1-14)
     Route: 048
     Dates: start: 20150106
  3. EPIRUBICIN [Suspect]
     Active Substance: EPIRUBICIN
     Indication: GASTRIC CANCER
     Dosage: ON DAY 1 OF HRE WEEEKS CYCLE (LAST DOSE: 06 JAN 2015)
     Route: 042
     Dates: start: 20150106

REACTIONS (2)
  - Peripheral ischaemia [Recovered/Resolved]
  - Peripheral coldness [Recovered/Resolved]

NARRATIVE: CASE EVENT DATE: 20150126
